FAERS Safety Report 25163270 (Version 2)
Quarter: 2025Q3

REPORT INFORMATION
  Report Type: Spontaneous
  Country: US (occurrence: None)
  Receive Date: 20250404
  Receipt Date: 20250701
  Transmission Date: 20251020
  Serious: No
  Sender: INCYTE
  Company Number: US-INCYTE CORPORATION-2025IN003319

PATIENT
  Age: 78 Year

DRUGS (3)
  1. JAKAFI [Suspect]
     Active Substance: RUXOLITINIB
     Indication: Myelofibrosis
     Dosage: 20 MILLIGRAM, BID
  2. JAKAFI [Suspect]
     Active Substance: RUXOLITINIB
     Dosage: 5 MILLIGRAM, BID
  3. JAKAFI [Suspect]
     Active Substance: RUXOLITINIB
     Dosage: 5 MILLIGRAM, BID

REACTIONS (11)
  - Oedema [Unknown]
  - Tinnitus [Unknown]
  - Gait disturbance [Unknown]
  - Arthralgia [Unknown]
  - Osteoporosis [Unknown]
  - Blood glucose increased [Unknown]
  - Blood glucose abnormal [Unknown]
  - Blood cholesterol abnormal [Unknown]
  - Blood cholesterol increased [Unknown]
  - Weight increased [Unknown]
  - Haemoglobin decreased [Unknown]
